FAERS Safety Report 14229434 (Version 1)
Quarter: 2017Q4

REPORT INFORMATION
  Report Type: Spontaneous
  Country: US (occurrence: None)
  Receive Date: 20171126
  Receipt Date: 20171126
  Transmission Date: 20180321
  Serious: Yes (Hospitalization)
  Sender: FDA-Public Use
  Company Number: None

PATIENT
  Age: 72 Year
  Sex: Male

DRUGS (1)
  1. ATORVASTATIN [Suspect]
     Active Substance: ATORVASTATIN
     Indication: HYPERLIPIDAEMIA
     Route: 048
     Dates: start: 20150518, end: 20170503

REACTIONS (8)
  - Drug ineffective [None]
  - Myopathy [None]
  - Myositis [None]
  - Inclusion body myositis [None]
  - Hyperglycaemia [None]
  - Dehydration [None]
  - Dermatomyositis [None]
  - Muscle neoplasm [None]

NARRATIVE: CASE EVENT DATE: 20170810
